FAERS Safety Report 21958666 (Version 1)
Quarter: 2023Q1

REPORT INFORMATION
  Report Type: Spontaneous
  Country: FR (occurrence: FR)
  Receive Date: 20230206
  Receipt Date: 20230206
  Transmission Date: 20230418
  Serious: Yes (Hospitalization, Other)
  Sender: FDA-Public Use
  Company Number: FR-MYLANLABS-2004104224

PATIENT
  Age: 63 Year
  Sex: Female

DRUGS (10)
  1. NEURONTIN [Suspect]
     Active Substance: GABAPENTIN
     Indication: Product used for unknown indication
     Dosage: 900 MILLIGRAM, QD (300 MG WAS USED AS DOSAGE; FREQUENCY WAS EVERY 2 HOURS)
     Route: 048
     Dates: start: 20020301, end: 20040912
  2. LAMALINE (ACETAMINOPHEN\CAFFEINE\OPIUM) [Suspect]
     Active Substance: ACETAMINOPHEN\CAFFEINE\OPIUM
     Indication: Product used for unknown indication
     Dosage: UNK
     Route: 048
     Dates: start: 20040515, end: 20040824
  3. TROXERUTIN [Suspect]
     Active Substance: TROXERUTIN
     Indication: Ill-defined disorder
     Dosage: UNK
     Route: 048
     Dates: start: 20040515, end: 20040824
  4. ZOLPIDEM TARTRATE [Suspect]
     Active Substance: ZOLPIDEM TARTRATE
     Indication: Ill-defined disorder
     Dosage: 10 MILLIGRAM, QD
     Route: 048
  5. IRBESARTAN [Suspect]
     Active Substance: IRBESARTAN
     Indication: Ill-defined disorder
     Dosage: UNK
     Route: 048
     Dates: end: 20040824
  6. TRAMADOL HCL [Suspect]
     Active Substance: TRAMADOL HYDROCHLORIDE
     Indication: Ill-defined disorder
     Dosage: 150 MILLIGRAM, BID
     Route: 048
     Dates: start: 20040720, end: 20040912
  7. TROXERUTIN [Suspect]
     Active Substance: TROXERUTIN
     Indication: Product used for unknown indication
     Dosage: UNK
     Route: 048
     Dates: start: 20040515, end: 20040824
  8. ZOLPIDEM TARTRATE [Suspect]
     Active Substance: ZOLPIDEM TARTRATE
     Indication: Product used for unknown indication
     Dosage: 10 MILLIGRAM, QD (TWICE A DAY)
     Route: 048
  9. IRBESARTAN [Suspect]
     Active Substance: IRBESARTAN
     Indication: Product used for unknown indication
     Dosage: UNK
     Route: 048
     Dates: end: 20040824
  10. TRAMADOL HYDROCHLORIDE [Suspect]
     Active Substance: TRAMADOL HYDROCHLORIDE
     Indication: Product used for unknown indication
     Dosage: 300 MILLIGRAM, QD (150 MG WAS THE USED DOSAGE; FREQUENCY: EVERY HOUR)
     Route: 048
     Dates: start: 20040720, end: 20040912

REACTIONS (5)
  - Thrombocytopenic purpura [Not Recovered/Not Resolved]
  - Thrombocytopenia [Not Recovered/Not Resolved]
  - Colonoscopy [Not Recovered/Not Resolved]
  - Serology abnormal [Not Recovered/Not Resolved]
  - Haematoma [Unknown]

NARRATIVE: CASE EVENT DATE: 20040601
